FAERS Safety Report 12019590 (Version 1)
Quarter: 2016Q1

REPORT INFORMATION
  Report Type: Report from Study
  Country: US (occurrence: US)
  Receive Date: 20160206
  Receipt Date: 20160206
  Transmission Date: 20160526
  Serious: No
  Sender: FDA-Public Use
  Company Number: US-ABBVIE-15K-163-1463397-00

PATIENT
  Age: 33 Year
  Sex: Female

DRUGS (1)
  1. HUMIRA [Suspect]
     Active Substance: ADALIMUMAB
     Indication: PRODUCT USED FOR UNKNOWN INDICATION
     Route: 058

REACTIONS (7)
  - Mycotic allergy [Recovering/Resolving]
  - Eye swelling [Recovering/Resolving]
  - Dermatitis allergic [Recovering/Resolving]
  - Allergy to chemicals [Recovering/Resolving]
  - Dermatitis contact [Recovering/Resolving]
  - Pruritus allergic [Recovering/Resolving]
  - Urticaria [Recovering/Resolving]
